FAERS Safety Report 12946411 (Version 1)
Quarter: 2016Q4

REPORT INFORMATION
  Report Type: Other
  Country: DE (occurrence: DE)
  Receive Date: 20161116
  Receipt Date: 20161116
  Transmission Date: 20170207
  Serious: Yes (Life-Threatening, Hospitalization)
  Sender: FDA-Public Use
  Company Number: DE-LUPIN PHARMACEUTICALS INC.-E2B_00006554

PATIENT
  Sex: Male
  Weight: 92 kg

DRUGS (1)
  1. SIMVASTATIN. [Suspect]
     Active Substance: SIMVASTATIN
     Indication: CORONARY ARTERY DISEASE
     Route: 048

REACTIONS (3)
  - Liver injury [Recovering/Resolving]
  - Neoplasm [Not Recovered/Not Resolved]
  - Liver function test abnormal [Not Recovered/Not Resolved]
